FAERS Safety Report 18801891 (Version 1)
Quarter: 2021Q1

REPORT INFORMATION
  Report Type: Spontaneous
  Country: FI (occurrence: FI)
  Receive Date: 20210128
  Receipt Date: 20210128
  Transmission Date: 20210419
  Serious: Yes (Disabling)
  Sender: FDA-Public Use
  Company Number: FI-BAYER-2021-033180

PATIENT
  Age: 41 Year
  Sex: Male

DRUGS (4)
  1. CIPROXIN 500 MG [Suspect]
     Active Substance: CIPROFLOXACIN
     Indication: CYSTITIS
     Dosage: 1000 MG, QD
     Route: 048
     Dates: start: 20201123, end: 20201130
  2. LOSARTAN KRKA [LOSARTAN POTASSIUM] [Concomitant]
     Dosage: 50 MG, QD
  3. AMLODIPIN ORION [AMLODIPINE BESILATE] [Concomitant]
     Dosage: 10 MG, QD
  4. ENTOCORT [Concomitant]
     Active Substance: BUDESONIDE
     Indication: COLITIS MICROSCOPIC
     Dosage: 6 MG, QD
     Dates: start: 20201110

REACTIONS (3)
  - Antinuclear antibody increased [Not Recovered/Not Resolved]
  - Arthralgia [Not Recovered/Not Resolved]
  - Myalgia [Not Recovered/Not Resolved]

NARRATIVE: CASE EVENT DATE: 20201124
